FAERS Safety Report 22094294 (Version 1)
Quarter: 2023Q1

REPORT INFORMATION
  Report Type: Report from Study
  Country: CA (occurrence: CA)
  Receive Date: 20230314
  Receipt Date: 20230314
  Transmission Date: 20230417
  Serious: Yes (Other)
  Sender: FDA-Public Use
  Company Number: CA-BAUSCH-BL-2022-014009

PATIENT
  Sex: Female
  Weight: 89.342 kg

DRUGS (4)
  1. CONTRAVE [Suspect]
     Active Substance: BUPROPION HYDROCHLORIDE\NALTREXONE HYDROCHLORIDE
     Indication: Weight control
     Dosage: 90/8 MG, 1 TAB Q AM
     Route: 048
     Dates: start: 20220426, end: 20220511
  2. CONTRAVE [Suspect]
     Active Substance: BUPROPION HYDROCHLORIDE\NALTREXONE HYDROCHLORIDE
     Dosage: 90/8 MG, 1 TAB Q AM 1 TAB Q PM
     Route: 048
     Dates: start: 20220512, end: 20220616
  3. CONTRAVE [Suspect]
     Active Substance: BUPROPION HYDROCHLORIDE\NALTREXONE HYDROCHLORIDE
     Dosage: 90/8 MG, 1 TAB Q AM
     Route: 048
     Dates: start: 20220617, end: 2022
  4. CONTRAVE [Suspect]
     Active Substance: BUPROPION HYDROCHLORIDE\NALTREXONE HYDROCHLORIDE
     Dosage: 90/8 MG, 1 TAB Q AM (SECOND ATTEMPT)
     Route: 048
     Dates: start: 20221228, end: 202301

REACTIONS (20)
  - Syncope [Unknown]
  - Abdominal distension [Not Recovered/Not Resolved]
  - COVID-19 [Recovered/Resolved]
  - Ligament sprain [Recovered/Resolved]
  - Lip dry [Unknown]
  - Abdominal rigidity [Recovered/Resolved]
  - Decreased appetite [Unknown]
  - Disease recurrence [Not Recovered/Not Resolved]
  - Blood pressure increased [Recovered/Resolved]
  - Nausea [Not Recovered/Not Resolved]
  - Fatigue [Not Recovered/Not Resolved]
  - Headache [Not Recovered/Not Resolved]
  - Vomiting [Recovered/Resolved]
  - Diarrhoea [Not Recovered/Not Resolved]
  - Constipation [Recovered/Resolved]
  - Abdominal pain upper [Not Recovered/Not Resolved]
  - Insomnia [Recovered/Resolved]
  - Therapy interrupted [Unknown]
  - Patient dissatisfaction with treatment [Unknown]
  - Off label use [Unknown]

NARRATIVE: CASE EVENT DATE: 20220101
